FAERS Safety Report 15738726 (Version 1)
Quarter: 2018Q4

REPORT INFORMATION
  Report Type: Spontaneous
  Country: US (occurrence: US)
  Receive Date: 20181219
  Receipt Date: 20181219
  Transmission Date: 20190205
  Serious: No
  Sender: FDA-Public Use
  Company Number: US-BAYER-2018-229914

PATIENT
  Age: 65 Year
  Sex: Female
  Weight: 54 kg

DRUGS (1)
  1. MIRALAX [Suspect]
     Active Substance: POLYETHYLENE GLYCOL 3350
     Indication: DIVERTICULITIS
     Dosage: 1 DF, Q4HR
     Route: 048
     Dates: start: 201811

REACTIONS (3)
  - Off label use [Unknown]
  - Drug ineffective [None]
  - Product use in unapproved indication [Unknown]

NARRATIVE: CASE EVENT DATE: 201811
